FAERS Safety Report 18318594 (Version 1)
Quarter: 2020Q3

REPORT INFORMATION
  Report Type: Spontaneous
  Country: US (occurrence: US)
  Receive Date: 20200925
  Receipt Date: 20200925
  Transmission Date: 20201103
  Serious: Yes (Hospitalization)
  Sender: FDA-Public Use
  Company Number: None

PATIENT
  Age: 74 Year
  Sex: Male

DRUGS (19)
  1. ASPIRIN CHW [Concomitant]
  2. METOPROL TAR [Concomitant]
  3. DILTIAZEM. [Concomitant]
     Active Substance: DILTIAZEM
  4. METHOCARBAM [Concomitant]
     Active Substance: METHOCARBAMOL
  5. SSD CRE [Concomitant]
  6. XARELTO [Concomitant]
     Active Substance: RIVAROXABAN
  7. ACETAMIN [Concomitant]
     Active Substance: ACETAMINOPHEN
  8. HYDROXYCHLOR [Concomitant]
     Active Substance: HYDROXYCHLOROQUINE
  9. ENBREL [Suspect]
     Active Substance: ETANERCEPT
     Indication: PRODUCT USED FOR UNKNOWN INDICATION
     Dosage: 1 PEN QWK SQ
     Route: 058
     Dates: start: 20180116
  10. DOXAZOSIN [Concomitant]
     Active Substance: DOXAZOSIN MESYLATE
  11. SULFASALAZINE DELAYED?RELEASE [Concomitant]
     Active Substance: SULFASALAZINE
  12. ATORVASTATIN [Concomitant]
     Active Substance: ATORVASTATIN
  13. DOK [Concomitant]
     Active Substance: DOCUSATE SODIUM
  14. CLOPIDOGREL [Concomitant]
     Active Substance: CLOPIDOGREL BISULFATE
  15. OXYCODONE [Concomitant]
     Active Substance: OXYCODONE
  16. ZOLPIDEM [Concomitant]
     Active Substance: ZOLPIDEM TARTRATE
  17. PANTOPRAZOLE [Concomitant]
     Active Substance: PANTOPRAZOLE
  18. SMZ/TMP DS [Concomitant]
     Active Substance: SULFAMETHOXAZOLE\TRIMETHOPRIM
  19. VANCOMYCIN [Concomitant]
     Active Substance: VANCOMYCIN

REACTIONS (2)
  - Surgery [None]
  - Therapy interrupted [None]

NARRATIVE: CASE EVENT DATE: 20200817
